FAERS Safety Report 20562948 (Version 8)
Quarter: 2022Q4

REPORT INFORMATION
  Report Type: Report from Study
  Country: PT (occurrence: PT)
  Receive Date: 20220307
  Receipt Date: 20221006
  Transmission Date: 20230112
  Serious: Yes (Other)
  Sender: FDA-Public Use
  Company Number: PT-ABBVIE-22K-130-4304198-00

PATIENT
  Age: 66 Year
  Sex: Male

DRUGS (17)
  1. CARBIDOPA\LEVODOPA [Suspect]
     Active Substance: CARBIDOPA\LEVODOPA
     Indication: Parkinson^s disease
     Dosage: MORN:10 ML;MAIN:1.5ML/H;EXTRA:1ML ?20 MG PLUS 5 MG
     Route: 050
     Dates: start: 20211014, end: 2021
  2. CARBIDOPA\LEVODOPA [Suspect]
     Active Substance: CARBIDOPA\LEVODOPA
     Dosage: MORN:20CC;MAIN:5.3CC/H;EXTRA:3CC 20 MG PLUS 5 MG
     Route: 050
     Dates: start: 2021, end: 20220420
  3. CARBIDOPA\LEVODOPA [Suspect]
     Active Substance: CARBIDOPA\LEVODOPA
     Dosage: 20 MG PLUS 5 MG. MORN:15CC, MAIN:5.2CC/H, EXTRA:2CC.
     Route: 050
     Dates: start: 20220420
  4. CARBIDOPA\LEVODOPA [Suspect]
     Active Substance: CARBIDOPA\LEVODOPA
     Route: 050
  5. SINEMET [Concomitant]
     Active Substance: CARBIDOPA\LEVODOPA
     Indication: Product used for unknown indication
     Dosage: 2 TABLETS AT BEDTIME, BEFORE DUODOPA
  6. AMANTADINE [Concomitant]
     Active Substance: AMANTADINE
     Indication: Product used for unknown indication
     Dosage: 1 TABLET AT BREAKFAST, BEFORE DUODOPA
     Dates: end: 20220228
  7. DIAZEPAM [Concomitant]
     Active Substance: DIAZEPAM
     Indication: Product used for unknown indication
     Dosage: 1 TABLET AT BEDTIME, BEFORE DUODOPA
  8. DOMPERIDONE [Concomitant]
     Active Substance: DOMPERIDONE
     Indication: Product used for unknown indication
     Dosage: TIME INTERVAL: 0.33333333 DAYS
     Dates: start: 202110
  9. DOMPERIDONE [Concomitant]
     Active Substance: DOMPERIDONE
     Indication: Product used for unknown indication
     Dates: start: 202110
  10. TRAZODONE [Concomitant]
     Active Substance: TRAZODONE HYDROCHLORIDE
     Indication: Product used for unknown indication
     Dosage: 1/2 TABLET AT BEDTIME
     Dates: start: 202110
  11. ESOMEPRAZOLE [Concomitant]
     Active Substance: ESOMEPRAZOLE
     Indication: Product used for unknown indication
     Dosage: IN FASTING
     Dates: start: 202110
  12. FOLIC ACID [Concomitant]
     Active Substance: FOLIC ACID
     Indication: Product used for unknown indication
     Dosage: 1 TABLET AT LUNCH
     Dates: start: 202110
  13. CYANOCOBALAMIN [Concomitant]
     Active Substance: CYANOCOBALAMIN
     Indication: Product used for unknown indication
     Dosage: 1 TABLET AT LUNCH
     Dates: start: 202110
  14. XADAGO [Concomitant]
     Active Substance: SAFINAMIDE MESYLATE
     Indication: Product used for unknown indication
     Dates: start: 202201, end: 20220228
  15. RISPERDAL [Concomitant]
     Active Substance: RISPERIDONE
     Indication: Psychotic disorder
     Dosage: IN SOS
     Dates: start: 20220228
  16. QUETIAPINE [Concomitant]
     Active Substance: QUETIAPINE
     Indication: Psychotic disorder
     Dates: start: 20220302
  17. QUETIAPINE [Concomitant]
     Active Substance: QUETIAPINE
     Indication: Psychotic disorder
     Dates: start: 20220302

REACTIONS (8)
  - Weight decreased [Recovered/Resolved]
  - Memory impairment [Not Recovered/Not Resolved]
  - Eating disorder [Unknown]
  - Mobility decreased [Unknown]
  - Weight decreased [Not Recovered/Not Resolved]
  - Decreased appetite [Not Recovered/Not Resolved]
  - Hypophagia [Not Recovered/Not Resolved]
  - Parkinson^s disease [Unknown]

NARRATIVE: CASE EVENT DATE: 20211101
